FAERS Safety Report 12978253 (Version 1)
Quarter: 2016Q4

REPORT INFORMATION
  Report Type: Spontaneous
  Country: US (occurrence: US)
  Receive Date: 20161126
  Receipt Date: 20161126
  Transmission Date: 20170207
  Serious: Yes (Disabling)
  Sender: FDA-Public Use
  Company Number: None

PATIENT
  Age: 70 Year
  Sex: Female
  Weight: 63 kg

DRUGS (12)
  1. VITAMIN E [Concomitant]
     Active Substance: .ALPHA.-TOCOPHEROL
  2. L-LYSINE [Concomitant]
     Active Substance: LYSINE
  3. AREDS2 [Concomitant]
  4. PROLIA [Suspect]
     Active Substance: DENOSUMAB
     Indication: OSTEOPOROSIS
     Route: 030
     Dates: start: 20160608
  5. VITAMIN C [Concomitant]
     Active Substance: ASCORBIC ACID
  6. LETROZOL [Concomitant]
     Active Substance: LETROZOLE
  7. TUMS [Concomitant]
     Active Substance: CALCIUM CARBONATE
  8. CITALOPRAM [Concomitant]
     Active Substance: CITALOPRAM HYDROBROMIDE
  9. VITAMIN D3 [Concomitant]
     Active Substance: CHOLECALCIFEROL
  10. ASPIRIN. [Concomitant]
     Active Substance: ASPIRIN
  11. VITAMIN B COMLPEX [Concomitant]
  12. SALINE NASAL SPRAY [Concomitant]
     Active Substance: SODIUM CHLORIDE

REACTIONS (5)
  - Tooth fracture [None]
  - Tooth infection [None]
  - Gingival swelling [None]
  - Gingival pain [None]
  - Osteogenesis imperfecta [None]

NARRATIVE: CASE EVENT DATE: 20160608
